FAERS Safety Report 10197004 (Version 4)
Quarter: 2014Q4

REPORT INFORMATION
  Report Type: Report from Study
  Country: US (occurrence: US)
  Receive Date: 20140527
  Receipt Date: 20141027
  Transmission Date: 20150528
  Serious: Yes (Death, Life-Threatening, Hospitalization)
  Sender: FDA-Public Use
  Company Number: US-009507513-1405USA012227

PATIENT
  Age: 54 Year
  Sex: Female
  Weight: 104.7 kg

DRUGS (6)
  1. CYTARABINE. [Suspect]
     Active Substance: CYTARABINE
     Indication: ACUTE MYELOID LEUKAEMIA
     Dosage: 1500 MG/M2/DAY, CONTINOUS IV INFUSION ON DAYS 4-6, (CYCLE = 28 DAYS)
     Route: 042
     Dates: start: 20140307, end: 20140310
  2. CYTARABINE. [Suspect]
     Active Substance: CYTARABINE
     Dosage: 1500 MG/M2/DAY, CONTINOUS IV INFUSION ON DAYS 4-6, (CYCLE= 28 DAYS)
     Route: 042
     Dates: start: 20140412, end: 20140415
  3. IDARUBICIN [Suspect]
     Active Substance: IDARUBICIN
     Dosage: 12 MG/M2/DAY (OVER 15 MINUTESDAYS 4-6), (CYCLE= 28 DAYS)
     Route: 042
     Dates: start: 20140412, end: 20140414
  4. VORINOSTAT [Suspect]
     Active Substance: VORINOSTAT
     Indication: ACUTE MYELOID LEUKAEMIA
     Dosage: 500 MG, TID (DAYS 1-3), (CYCLE = 28 DAYS)
     Route: 048
     Dates: start: 20140304, end: 20140306
  5. VORINOSTAT [Suspect]
     Active Substance: VORINOSTAT
     Dosage: 500 MG, TID (ON DAYS 1-3), (CYCLE= 28 DAYS)
     Route: 048
     Dates: start: 20140409, end: 20140411
  6. IDARUBICIN [Suspect]
     Active Substance: IDARUBICIN
     Indication: ACUTE MYELOID LEUKAEMIA
     Dosage: 12 MG/M2/DAY (OVER 15 MINUTESDAYS 4-6), (CYCLE= 28 DAYS)
     Route: 042
     Dates: start: 20140307, end: 20140409

REACTIONS (6)
  - Sepsis [Fatal]
  - Colitis [Unknown]
  - Seizure [Unknown]
  - Acute kidney injury [Unknown]
  - Respiratory failure [Unknown]
  - Small intestinal obstruction [Unknown]

NARRATIVE: CASE EVENT DATE: 20140509
